FAERS Safety Report 22040173 (Version 1)
Quarter: 2023Q1

REPORT INFORMATION
  Report Type: Spontaneous
  Country: US (occurrence: None)
  Receive Date: 20230223
  Receipt Date: 20230223
  Transmission Date: 20230417
  Serious: No
  Sender: FDA-Public Use
  Company Number: None

PATIENT
  Age: 58 Year
  Sex: Female
  Weight: 72.57 kg

DRUGS (1)
  1. LENVIMA [Suspect]
     Active Substance: LENVATINIB
     Indication: Metastases to liver
     Dates: start: 20230127

REACTIONS (4)
  - Stomatitis [None]
  - Dry mouth [None]
  - Oral pain [None]
  - Ear discomfort [None]
